FAERS Safety Report 23994944 (Version 2)
Quarter: 2024Q3

REPORT INFORMATION
  Report Type: Spontaneous
  Country: US (occurrence: US)
  Receive Date: 20240620
  Receipt Date: 20240705
  Transmission Date: 20241017
  Serious: Yes (Hospitalization)
  Sender: TEVA
  Company Number: US-TEVA-VS-3210004

PATIENT
  Age: 67 Year
  Sex: Female

DRUGS (5)
  1. CEPHALEXIN [Suspect]
     Active Substance: CEPHALEXIN
     Indication: Urinary tract infection
     Route: 065
  2. TESTOSTERONE [Concomitant]
     Active Substance: TESTOSTERONE
     Indication: Hormone replacement therapy
     Route: 065
  3. FENBENDAZOLE [Suspect]
     Active Substance: FENBENDAZOLE
     Indication: Precancerous skin lesion
     Dosage: TIME INTERVAL: 0.33333333 WEEKS: THRICE WEEKLY
     Route: 065
  4. ESTROGENS [Concomitant]
     Active Substance: ESTROGENS
     Indication: Oestrogen replacement therapy
     Route: 065
  5. PROGESTERONE [Concomitant]
     Active Substance: PROGESTERONE
     Indication: Hormone replacement therapy
     Route: 065

REACTIONS (4)
  - Drug-induced liver injury [Recovered/Resolved]
  - Rash maculo-papular [Unknown]
  - Intentional product misuse [Unknown]
  - Off label use [Unknown]
